FAERS Safety Report 11503521 (Version 9)
Quarter: 2016Q2

REPORT INFORMATION
  Report Type: Spontaneous
  Country: US (occurrence: US)
  Receive Date: 20150914
  Receipt Date: 20160405
  Transmission Date: 20160815
  Serious: Yes (Death, Hospitalization)
  Sender: FDA-Public Use
  Company Number: US-ASTELLAS-2015US025806

PATIENT
  Age: 85 Year
  Sex: Male

DRUGS (2)
  1. XTANDI [Suspect]
     Active Substance: ENZALUTAMIDE
     Indication: METASTASES TO BONE
  2. XTANDI [Suspect]
     Active Substance: ENZALUTAMIDE
     Indication: PROSTATE CANCER
     Route: 065

REACTIONS (16)
  - Hospitalisation [Unknown]
  - Adverse event [Unknown]
  - Urinary incontinence [Unknown]
  - Prostatic specific antigen increased [Unknown]
  - Malaise [Unknown]
  - Constipation [Unknown]
  - Decreased appetite [Unknown]
  - Decreased appetite [Unknown]
  - Pruritus generalised [Unknown]
  - Joint swelling [Unknown]
  - Cancer pain [Unknown]
  - Death [Fatal]
  - Suffocation feeling [Unknown]
  - Tooth extraction [Unknown]
  - Diarrhoea [Unknown]
  - Somnolence [Unknown]

NARRATIVE: CASE EVENT DATE: 20151119
